FAERS Safety Report 8589806-5 (Version None)
Quarter: 2012Q3

REPORT INFORMATION
  Report Type: 
  Country: None (occurrence: None)
  Receive Date: 20120813
  Receipt Date: 20120809
  Transmission Date: 20120928
  Serious: No
  Sender: FDA-Public Use
  Company Number: US-PFIZER INC-2012195187

PATIENT
  Age: 73 Year
  Sex: Female
  Weight: 67.12 kg

DRUGS (5)
  1. LYRICA [Suspect]
     Dosage: UNK
     Route: 048
     Dates: end: 20120801
  2. ZOVIRAX [Concomitant]
     Dosage: UNK
  3. TYLENOL [Concomitant]
     Indication: PAIN
     Dosage: UNK
  4. LYRICA [Suspect]
     Indication: NEURALGIA
     Dosage: 50 MG, 2X/DAY
     Route: 048
     Dates: start: 20120709
  5. OXYCODONE [Concomitant]
     Indication: PAIN
     Dosage: UNK

REACTIONS (1)
  - ALOPECIA [None]
